FAERS Safety Report 23555146 (Version 2)
Quarter: 2024Q3

REPORT INFORMATION
  Report Type: Spontaneous
  Country: AT (occurrence: AT)
  Receive Date: 20240222
  Receipt Date: 20240808
  Transmission Date: 20241016
  Serious: Yes (Hospitalization, Other)
  Sender: SANDOZ
  Company Number: AT-BAXTER-2023BAX037513

PATIENT
  Age: 76 Year
  Sex: Female
  Weight: 84 kg

DRUGS (56)
  1. CYCLOPHOSPHAMIDE [Suspect]
     Active Substance: CYCLOPHOSPHAMIDE
     Dosage: 712.77 MG, Q3W
     Route: 040
     Dates: start: 20231113, end: 20240313
  2. CYCLOPHOSPHAMIDE [Suspect]
     Active Substance: CYCLOPHOSPHAMIDE
     Indication: Diffuse large B-cell lymphoma stage IV
     Dosage: 1448.88 MG, EVERY 3 WEEKS
     Route: 042
     Dates: start: 20231113, end: 20231113
  3. DOXORUBICIN [Suspect]
     Active Substance: DOXORUBICIN
     Dosage: 47.52 MG, Q3W
     Route: 040
     Dates: start: 20231113, end: 20240313
  4. DOXORUBICIN [Suspect]
     Active Substance: DOXORUBICIN
     Indication: Diffuse large B-cell lymphoma stage IV
     Dosage: 96.59 MG, EVERY 3 WEEKS
     Route: 042
     Dates: start: 20231113, end: 20231113
  5. EPCORITAMAB [Suspect]
     Active Substance: EPCORITAMAB
     Indication: Diffuse large B-cell lymphoma stage IV
     Dosage: 0.16 MG
     Route: 058
     Dates: start: 20231114, end: 20231114
  6. EPCORITAMAB [Suspect]
     Active Substance: EPCORITAMAB
     Dosage: 0.16 MG PRIMING DOSE; C1, D1, TOTAL
     Route: 058
     Dates: start: 20231114, end: 20231114
  7. EPCORITAMAB [Suspect]
     Active Substance: EPCORITAMAB
     Indication: Diffuse large B-cell lymphoma
     Dosage: 0.16 MG RE-PRIMING, TOTAL
     Route: 058
     Dates: start: 20231205, end: 20231205
  8. EPCORITAMAB [Suspect]
     Active Substance: EPCORITAMAB
     Dosage: 0.8 MG INTERMEDIATE DOSE, TOTAL
     Route: 058
     Dates: start: 20231212, end: 20231212
  9. EPCORITAMAB [Suspect]
     Active Substance: EPCORITAMAB
     Dosage: 48 MG C1 (STEP-UP), CYCLES 2 - 4 (21-DAY CYCLE, WEEKLY DOSE), C5 - 8 (21-DAY  CYCLE, EVERY 3 WEEKS)
     Route: 058
     Dates: start: 20240103, end: 20240424
  10. EPCORITAMAB [Suspect]
     Active Substance: EPCORITAMAB
     Dosage: 48 MG FULL DOSE, TOTAL
     Route: 058
     Dates: start: 20231219, end: 20231219
  11. PREDNISONE [Suspect]
     Active Substance: PREDNISONE
     Indication: Diffuse large B-cell lymphoma stage IV
     Dosage: 100 MG C1-6, DAY 1-5, EVERY 1 DAYS
     Route: 048
     Dates: start: 20231113, end: 20231117
  12. PREDNISONE [Suspect]
     Active Substance: PREDNISONE
     Dosage: 100 MG C1-6, DAY 1-5, EVERY 1 DAYS
     Route: 048
     Dates: start: 20231205
  13. RITUXIMAB [Suspect]
     Active Substance: RITUXIMAB
     Dosage: 724.44 MG, Q3W
     Route: 040
     Dates: start: 20231113, end: 20240413
  14. RITUXIMAB [Suspect]
     Active Substance: RITUXIMAB
     Indication: Diffuse large B-cell lymphoma stage IV
     Dosage: 724.44 MG, EVERY 3 WEEKS
     Route: 042
     Dates: start: 20231113, end: 20231113
  15. VINCRISTINE [Suspect]
     Active Substance: VINCRISTINE
     Dosage: 2 MG, Q3W
     Route: 040
     Dates: start: 20231113, end: 20240313
  16. VINCRISTINE [Suspect]
     Active Substance: VINCRISTINE
     Indication: Diffuse large B-cell lymphoma stage IV
     Dosage: 2 MG, EVERY 3 WEEKS
     Route: 042
     Dates: start: 20231113, end: 20231113
  17. ALLOPURINOL [Concomitant]
     Active Substance: ALLOPURINOL
     Indication: Prophylaxis
     Dosage: 300 MG, EVERY 1 DAYS
     Route: 065
     Dates: start: 20231116
  18. AMIODARONE [Concomitant]
     Active Substance: AMIODARONE
     Indication: Atrial fibrillation
     Dosage: 200 MG, EVERY 1 DAYS
     Route: 065
     Dates: start: 20240110
  19. APREPITANT [Concomitant]
     Active Substance: APREPITANT
     Indication: Prophylaxis of nausea and vomiting
     Dosage: 125/80 MG, OCCASIONAL
     Route: 065
     Dates: start: 20231113
  20. ATORVASTATIN [Concomitant]
     Active Substance: ATORVASTATIN
     Indication: Product used for unknown indication
     Dosage: 80 MG, EVERY 1 DAYS
     Route: 065
     Dates: start: 20231108
  21. BISOPROLOL [Concomitant]
     Active Substance: BISOPROLOL\BISOPROLOL FUMARATE
     Indication: Atrial fibrillation
     Dosage: 5 MG, EVERY 1 DAYS
     Route: 065
     Dates: start: 1998
  22. CANDESARTAN [Concomitant]
     Active Substance: CANDESARTAN
     Indication: Hypertension
     Dosage: 8 MG, EVERY 1 DAYS (START DATE: 2003)
     Route: 065
  23. CHLORHEXIDINE GLUCONATE [Concomitant]
     Active Substance: CHLORHEXIDINE GLUCONATE
     Indication: Mucosal inflammation
     Dosage: 500 ML, EVERY 6 HOURS
     Route: 065
     Dates: start: 20231112
  24. CHLORHEXIDINE GLUCONATE [Concomitant]
     Active Substance: CHLORHEXIDINE GLUCONATE
     Indication: Prophylaxis
  25. CHLORHEXIDINE GLUCONATE [Concomitant]
     Active Substance: CHLORHEXIDINE GLUCONATE
     Indication: Stomatitis
  26. CHLORHEXAMED FORTE [Concomitant]
     Indication: Prophylaxis
     Dosage: 500 ML, EVERY 6 HOURS
     Route: 065
     Dates: start: 20231112
  27. CHLORHEXAMED FORTE [Concomitant]
     Dosage: 500 ML, EVERY 6 HOURS ROUTE OF ADMIN (FREE TEXT): UNKNOWN ROUTE
     Route: 065
     Dates: start: 20231112
  28. CHLORHEXAMED FORTE [Concomitant]
     Indication: Stomatitis
  29. Daflon [Concomitant]
     Indication: Peripheral venous disease
     Dosage: 500 MG, EVERY 1 DAYS
     Route: 065
     Dates: start: 2003
  30. Daflon [Concomitant]
     Indication: Prophylaxis
  31. Daflon [Concomitant]
     Indication: Vascular disorder prophylaxis
  32. DIMENHYDRINATE [Concomitant]
     Active Substance: DIMENHYDRINATE
     Indication: Vertigo
     Dosage: 50 MG, Q8H
     Route: 065
     Dates: start: 20240317
  33. EMEND [Concomitant]
     Active Substance: APREPITANT
     Indication: Prophylaxis of nausea and vomiting
     Dosage: 125/80 MG, OCCASIONAL
     Route: 065
     Dates: start: 20231113
  34. FUROSEMIDE [Concomitant]
     Active Substance: FUROSEMIDE
     Indication: Product used for unknown indication
     Dosage: 30 MG, EVERY 1 DAYS
     Route: 065
     Dates: start: 20231108
  35. FUROSEMIDE [Concomitant]
     Active Substance: FUROSEMIDE
     Dosage: 30 MG, EVERY 1 DAYS ROUTE OF ADMIN (FREE TEXT): UNKNOWN ROUTE
     Route: 065
     Dates: start: 20231108
  36. FUROSEMIDE [Concomitant]
     Active Substance: FUROSEMIDE
     Indication: Primary biliary cholangitis
  37. Gerovit [Concomitant]
     Indication: Vitamin supplementation
     Dosage: 40 DROPS, EVERY 1 WEEKS
     Route: 065
  38. Gerovit [Concomitant]
     Dosage: 40 DROPS, EVERY 1 WEEKS ROUTE OF ADMIN (FREE TEXT): UNKNOWN ROUTE
     Route: 065
  39. Gerovit d3 [Concomitant]
     Indication: Vitamin supplementation
     Dosage: 40 DROPS, EVERY 1 WEEKS
     Route: 065
  40. LASIX [Concomitant]
     Active Substance: FUROSEMIDE
     Indication: Primary biliary cholangitis
     Dosage: 30 MG, EVERY 1 DAYS
     Route: 065
     Dates: start: 20231108
  41. LEVOFLOXACIN [Concomitant]
     Active Substance: LEVOFLOXACIN
     Indication: Infection prophylaxis
     Dosage: 500 MG, EVERY 1 DAYS
     Route: 065
     Dates: start: 20240223
  42. Lidaprim [Concomitant]
     Indication: Infection prophylaxis
     Dosage: 800 MG SULFAMTROL/160 MG TRIMETHOPRIM, 3/WEEKS
     Route: 065
     Dates: start: 20231115
  43. Micro kalium [Concomitant]
     Indication: Hypokalaemia
     Dosage: 1200 MG, Q12H
     Route: 065
     Dates: start: 20240224
  44. NI LI AN [Concomitant]
     Indication: Hypertension
     Dosage: 8 MG, EVERY 1 DAYS
     Route: 065
     Dates: start: 2003
  45. NI LI AN [Concomitant]
     Dosage: 8 MG, EVERY 1 DAYS (START DATE: 2003) ROUTE OF ADMIN (FREE TEXT): UNKNOWN ROUTE
     Route: 065
  46. PANTOPRAZOLE SODIUM [Concomitant]
     Active Substance: PANTOPRAZOLE SODIUM
     Indication: Gastrointestinal disorder prophylaxis
     Dosage: 40 MG, EVERY 1 DAY
     Route: 065
     Dates: start: 20231114
  47. ROSUVASTATIN [Concomitant]
     Active Substance: ROSUVASTATIN\ROSUVASTATIN CALCIUM
     Indication: Cerebral artery occlusion
     Dosage: 40 MG, EVERY 1 DAYS
     Route: 065
     Dates: start: 20240326
  48. Siccaforte [Concomitant]
     Indication: Eye disorder prophylaxis
     Dosage: 10 G OCCASIONAL
     Route: 065
     Dates: start: 2020
  49. Siccaforte [Concomitant]
     Dosage: 10 G OCCASIONAL (START DATE: 2020) ROUTE OF ADMIN (FREE TEXT): UNKNOWN ROUTE
     Route: 065
  50. LEVOTHYROXINE SODIUM [Concomitant]
     Active Substance: LEVOTHYROXINE SODIUM
     Indication: Thyroidectomy
     Dosage: 50 UG, EVERY 1 DAYS
     Route: 065
     Dates: start: 1994
  51. LEVOTHYROXINE SODIUM [Concomitant]
     Active Substance: LEVOTHYROXINE SODIUM
     Indication: Hypothyroidism
  52. LEVOTHYROXINE SODIUM [Concomitant]
     Active Substance: LEVOTHYROXINE SODIUM
     Indication: Product substitution
  53. URSODIOL [Concomitant]
     Active Substance: URSODIOL
     Indication: Primary biliary cholangitis
     Dosage: 500 MG, TWICE (START DATE: MAY-2021)
     Route: 065
     Dates: start: 20210521
  54. VIROPEL [Concomitant]
     Indication: Antiviral prophylaxis
     Dosage: 500 MG, EVERY 1 DAYS
     Route: 065
     Dates: start: 20231115
  55. XARELTO [Concomitant]
     Active Substance: RIVAROXABAN
     Indication: Atrial fibrillation
     Dosage: 20 MG, EVERY 1 DAYS
     Route: 065
     Dates: start: 202005
  56. ALLOPURINOL [Concomitant]
     Active Substance: ALLOPURINOL
     Indication: Prophylaxis
     Dosage: 300 MG, EVERY 1 DAYS
     Route: 065
     Dates: start: 20231116

REACTIONS (2)
  - Febrile neutropenia [Recovered/Resolved]
  - Febrile neutropenia [Not Recovered/Not Resolved]

NARRATIVE: CASE EVENT DATE: 20231123
